FAERS Safety Report 17501999 (Version 3)
Quarter: 2020Q1

REPORT INFORMATION
  Report Type: Report from Study
  Country: US (occurrence: US)
  Receive Date: 20200305
  Receipt Date: 20200306
  Transmission Date: 20200409
  Serious: No
  Sender: FDA-Public Use
  Company Number: NVSC2020US062258

PATIENT
  Sex: Male

DRUGS (1)
  1. ENTRESTO [Suspect]
     Active Substance: SACUBITRIL\VALSARTAN
     Indication: CARDIAC STRESS TEST ABNORMAL
     Dosage: 1 DF, 24/26 MG
     Route: 048

REACTIONS (2)
  - Product use in unapproved indication [Unknown]
  - Muscular weakness [Unknown]
